FAERS Safety Report 7699315-3 (Version None)
Quarter: 2011Q3

REPORT INFORMATION
  Report Type: 
  Country: None (occurrence: None)
  Receive Date: 20110819
  Receipt Date: 20110803
  Transmission Date: 20111222
  Serious: Yes (Hospitalization, Other)
  Sender: FDA-Public Use
  Company Number: US-BAYER-2011-050278

PATIENT
  Age: 16 Year
  Sex: Female
  Weight: 96.145 kg

DRUGS (9)
  1. TRIMETHOPRINEL CEPHALEXIN [Concomitant]
     Dosage: UNK
     Route: 048
     Dates: start: 20040101, end: 20050101
  2. DICYCLOMINE [Concomitant]
     Dosage: 20 MG, UNK
     Route: 048
     Dates: start: 20040101, end: 20050101
  3. AMOXICILLIN [Concomitant]
     Dosage: UNK
     Route: 048
     Dates: start: 20040101, end: 20050101
  4. YASMIN [Suspect]
     Indication: CONTRACEPTION
     Dosage: UNK
     Dates: start: 20040101, end: 20060101
  5. YASMIN [Suspect]
     Indication: PREMENSTRUAL SYNDROME
  6. PROMETHAZINE [Concomitant]
     Dosage: 25 MG, UNK
     Route: 048
     Dates: start: 20040101, end: 20050101
  7. KETOCONAZOLE [Concomitant]
     Dosage: 200 MG, UNK
     Route: 048
  8. SULFAMETHORAZIDE [Concomitant]
     Dosage: UNK
     Route: 048
     Dates: start: 20040101, end: 20050101
  9. FAMOTIDINE [Concomitant]
     Dosage: 20 MG, UNK
     Route: 048
     Dates: start: 20040101, end: 20050101

REACTIONS (5)
  - CHOLECYSTITIS CHRONIC [None]
  - INJURY [None]
  - EMOTIONAL DISTRESS [None]
  - PAIN [None]
  - GALLBLADDER DISORDER [None]
